FAERS Safety Report 7579812-1 (Version None)
Quarter: 2011Q2

REPORT INFORMATION
  Report Type: 
  Country: None (occurrence: None)
  Receive Date: 20110629
  Receipt Date: 20100505
  Transmission Date: 20111010
  Serious: No
  Sender: FDA-Public Use
  Company Number: A0859251A

PATIENT

DRUGS (2)
  1. ZYBAN [Suspect]
  2. LEXAPRO [Suspect]

REACTIONS (1)
  - LIBIDO DECREASED [None]
